FAERS Safety Report 4997855-9 (Version None)
Quarter: 2006Q2

REPORT INFORMATION
  Report Type: 
  Country: None (occurrence: None)
  Receive Date: 20060508
  Receipt Date: 20060424
  Transmission Date: 20061013
  Serious: Yes (Hospitalization)
  Sender: FDA-Public Use
  Company Number: 2006S1000074

PATIENT
  Age: 63 Year
  Sex: Male
  Weight: 55 kg

DRUGS (5)
  1. CUBICIN [Suspect]
     Indication: CATHETER SEPSIS
     Dosage: 4 MG/KG;Q24H;IV
     Route: 042
     Dates: start: 20051216
  2. CUBICIN [Suspect]
     Indication: ENDOCARDITIS
     Dosage: 4 MG/KG;Q24H;IV
     Route: 042
     Dates: start: 20051216
  3. CUBICIN [Suspect]
     Indication: ENTEROCOCCAL BACTERAEMIA
     Dosage: 4 MG/KG;Q24H;IV
     Route: 042
     Dates: start: 20051216
  4. GENTAMICIN [Suspect]
     Indication: ENDOCARDITIS ENTEROCOCCAL
     Dosage: IV
     Route: 042
     Dates: start: 20060403, end: 20060405
  5. LINEZOLID [Concomitant]

REACTIONS (8)
  - BLOOD CREATININE INCREASED [None]
  - CARDIAC VALVE VEGETATION [None]
  - CREATININE RENAL CLEARANCE DECREASED [None]
  - DISEASE RECURRENCE [None]
  - DRUG RESISTANCE [None]
  - ENDOCARDITIS ENTEROCOCCAL [None]
  - PANCREATITIS [None]
  - RENAL IMPAIRMENT [None]
